FAERS Safety Report 9137778 (Version 2)
Quarter: 2013Q1

REPORT INFORMATION
  Report Type: Report from Study
  Country: US (occurrence: US)
  Receive Date: 20130304
  Receipt Date: 20130312
  Transmission Date: 20140127
  Serious: Yes (Hospitalization)
  Sender: FDA-Public Use
  Company Number: US-ACTELION-A-US2013-79562

PATIENT
  Age: 78 Year
  Sex: Female

DRUGS (1)
  1. VENTAVIS [Suspect]
     Indication: PULMONARY ARTERIAL HYPERTENSION
     Dosage: UNK
     Route: 055

REACTIONS (8)
  - Cor pulmonale [Unknown]
  - Influenza [Unknown]
  - Dysphagia [Unknown]
  - Dyspnoea [Unknown]
  - Pyrexia [Unknown]
  - Oedema [Unknown]
  - Fluid retention [Unknown]
  - Drug dose omission [Unknown]
